FAERS Safety Report 25879493 (Version 1)
Quarter: 2025Q4

REPORT INFORMATION
  Report Type: Spontaneous
  Country: EU (occurrence: EU)
  Receive Date: 20251003
  Receipt Date: 20251003
  Transmission Date: 20260119
  Serious: Yes (Other)
  Sender: MERCK SHARP & DOHME LLC
  Company Number: EU-009507513-2335410

PATIENT
  Age: 45 Year
  Sex: Female

DRUGS (5)
  1. PEMBROLIZUMAB [Suspect]
     Active Substance: PEMBROLIZUMAB
     Indication: Triple negative breast cancer
     Dates: start: 202309
  2. LORAZEPAM [Concomitant]
     Active Substance: LORAZEPAM
  3. SERTRALINE [Concomitant]
     Active Substance: SERTRALINE HYDROCHLORIDE
  4. PACLITAXEL [Suspect]
     Active Substance: PACLITAXEL
     Indication: Triple negative breast cancer
     Dates: start: 2023
  5. CARBOPLATIN [Suspect]
     Active Substance: CARBOPLATIN
     Indication: Triple negative breast cancer
     Dates: start: 202309

REACTIONS (6)
  - Enterocolitis [Unknown]
  - Alopecia [Unknown]
  - Asthenia [Unknown]
  - Toxicity to various agents [Unknown]
  - Colitis [Unknown]
  - Mastectomy [Unknown]

NARRATIVE: CASE EVENT DATE: 20230901
